FAERS Safety Report 26011704 (Version 1)
Quarter: 2025Q4

REPORT INFORMATION
  Report Type: Spontaneous
  Country: AU (occurrence: AU)
  Receive Date: 20251107
  Receipt Date: 20251107
  Transmission Date: 20260118
  Serious: Yes (Other)
  Sender: TEVA
  Company Number: AU-TEVA-VS-3387749

PATIENT
  Sex: Female

DRUGS (4)
  1. QUETIAPINE [Suspect]
     Active Substance: QUETIAPINE
     Indication: Product used for unknown indication
     Dosage: QUETIAPINE FUMARATE
     Route: 064
  2. OLANZAPINE [Suspect]
     Active Substance: OLANZAPINE
     Indication: Product used for unknown indication
     Route: 064
  3. PHENOBARBITAL [Suspect]
     Active Substance: PHENOBARBITAL
     Indication: Product used for unknown indication
     Route: 064
  4. TEMAZEPAM [Suspect]
     Active Substance: TEMAZEPAM
     Indication: Product used for unknown indication
     Route: 064

REACTIONS (6)
  - Neonatal oversedation [Unknown]
  - Off label use [Unknown]
  - Withdrawal syndrome [Unknown]
  - Neonatal behavioural syndrome [Unknown]
  - Foetal exposure during pregnancy [Unknown]
  - Toxicity to various agents [Unknown]
